FAERS Safety Report 6176251-5 (Version None)
Quarter: 2009Q2

REPORT INFORMATION
  Report Type: 
  Country: None (occurrence: None)
  Receive Date: 20090501
  Receipt Date: 20090423
  Transmission Date: 20091009
  Serious: Yes (Other)
  Sender: FDA-Public Use
  Company Number: B0561293A

PATIENT
  Sex: Female
  Weight: 22 kg

DRUGS (4)
  1. RELENZA [Suspect]
     Indication: INFLUENZA
     Dosage: 10MG TWICE PER DAY
     Route: 055
     Dates: start: 20090216, end: 20090216
  2. NAUZELIN [Concomitant]
     Indication: STREPTOCOCCAL INFECTION
     Dosage: 2.1G PER DAY
     Route: 048
     Dates: start: 20090216, end: 20090218
  3. MEIACT [Concomitant]
     Indication: STREPTOCOCCAL INFECTION
     Dosage: 2.1G PER DAY
     Route: 048
     Dates: start: 20090216, end: 20090216
  4. BIOFERMIN [Concomitant]
     Indication: STREPTOCOCCAL INFECTION
     Dosage: 2.1G PER DAY
     Route: 048
     Dates: start: 20090216, end: 20090218

REACTIONS (6)
  - ABNORMAL BEHAVIOUR [None]
  - CRYING [None]
  - DELIRIUM [None]
  - SLEEP DISORDER [None]
  - SOMNAMBULISM [None]
  - VISION BLURRED [None]
